FAERS Safety Report 25154291 (Version 1)
Quarter: 2025Q2

REPORT INFORMATION
  Report Type: Spontaneous
  Country: FI (occurrence: FI)
  Receive Date: 20250403
  Receipt Date: 20250403
  Transmission Date: 20250717
  Serious: Yes (Other)
  Sender: ABBVIE
  Company Number: FI-ABBVIE-5656407

PATIENT
  Age: 37 Year
  Sex: Male

DRUGS (7)
  1. OZURDEX [Suspect]
     Active Substance: DEXAMETHASONE
     Indication: Diabetic retinal oedema
     Route: 031
     Dates: start: 202008, end: 202008
  2. OZURDEX [Suspect]
     Active Substance: DEXAMETHASONE
     Route: 031
     Dates: start: 202111, end: 202111
  3. OZURDEX [Suspect]
     Active Substance: DEXAMETHASONE
     Route: 031
     Dates: start: 202012, end: 202012
  4. OZURDEX [Suspect]
     Active Substance: DEXAMETHASONE
     Route: 031
     Dates: start: 20210629, end: 20210629
  5. OZURDEX [Suspect]
     Active Substance: DEXAMETHASONE
     Route: 031
     Dates: start: 202303, end: 202303
  6. OZURDEX [Suspect]
     Active Substance: DEXAMETHASONE
     Route: 031
     Dates: start: 202403, end: 202403
  7. BRINZOLAMIDE\TIMOLOL [Concomitant]
     Active Substance: BRINZOLAMIDE\TIMOLOL
     Indication: Product used for unknown indication
     Route: 065

REACTIONS (16)
  - Macular oedema [Recovering/Resolving]
  - Diabetic retinal oedema [Recovered/Resolved]
  - Visual acuity reduced [Not Recovered/Not Resolved]
  - Intraocular pressure increased [Recovering/Resolving]
  - Vitreous haemorrhage [Recovered/Resolved]
  - Iritis [Unknown]
  - Swelling [Unknown]
  - Macular cyst [Unknown]
  - Diabetic retinal oedema [Not Recovered/Not Resolved]
  - Retinal detachment [Unknown]
  - Retinal exudates [Unknown]
  - Adhesion [Unknown]
  - Diabetic retinal oedema [Recovered/Resolved]
  - Macular oedema [Recovered/Resolved]
  - Visual acuity reduced [Not Recovered/Not Resolved]
  - Visual acuity reduced [Recovered/Resolved]

NARRATIVE: CASE EVENT DATE: 20201201
